FAERS Safety Report 4999494-2 (Version None)
Quarter: 2006Q2

REPORT INFORMATION
  Report Type: 
  Country: None (occurrence: None)
  Receive Date: 20060509
  Receipt Date: 20060420
  Transmission Date: 20061013
  Serious: Yes (Death)
  Sender: FDA-Public Use
  Company Number: USA-2006-0024037

PATIENT
  Age: 43 Year
  Sex: Female

DRUGS (2)
  1. OXYCONTIN [Suspect]
     Indication: ARTHRITIS
     Dosage: 80 MG, SEE TEXT,
  2. AMITRIPTYLINE (AMITRIPTYLINE) [Concomitant]

REACTIONS (7)
  - CARDIAC FAILURE CONGESTIVE [None]
  - CONDITION AGGRAVATED [None]
  - DEPRESSION [None]
  - DYSARTHRIA [None]
  - GENERALISED OEDEMA [None]
  - MYOCARDIAL INFARCTION [None]
  - PAIN [None]
